FAERS Safety Report 13028324 (Version 2)
Quarter: 2017Q1

REPORT INFORMATION
  Report Type: Spontaneous
  Country: US (occurrence: US)
  Receive Date: 20161214
  Receipt Date: 20170203
  Transmission Date: 20170428
  Serious: Yes (Death, Hospitalization, Other)
  Sender: FDA-Public Use
  Company Number: US-009507513-1612USA006480

PATIENT
  Age: 69 Year

DRUGS (2)
  1. DECADRON [Suspect]
     Active Substance: DEXAMETHASONE
     Indication: PLASMA CELL MYELOMA
     Dosage: 4 MG, DAYS 1, 2, 8, 9, 15 + 16 Q 28 DAYS
     Route: 042
     Dates: start: 20150414, end: 20150903
  2. KYPROLIS [Suspect]
     Active Substance: CARFILZOMIB
     Indication: PLASMA CELL MYELOMA
     Dosage: 27MG/M2,  DAYS 1, 2, 8, 9, 15 + 16 Q 28 DAYS
     Route: 042
     Dates: start: 20150414, end: 20150903

REACTIONS (9)
  - Dyspnoea [Unknown]
  - Plasma cell myeloma [Fatal]
  - Pubis fracture [Recovered/Resolved]
  - Fall [Unknown]
  - Pyrexia [Unknown]
  - Cough [Unknown]
  - Orthostatic hypotension [Unknown]
  - Asthenia [Unknown]
  - Transient ischaemic attack [Unknown]

NARRATIVE: CASE EVENT DATE: 2015
